FAERS Safety Report 10148961 (Version 4)
Quarter: 2016Q3

REPORT INFORMATION
  Report Type: Report from Study
  Country: US (occurrence: US)
  Receive Date: 20140502
  Receipt Date: 20160919
  Transmission Date: 20161108
  Serious: Yes (Hospitalization, Other)
  Sender: FDA-Public Use
  Company Number: US-ROCHE-1387704

PATIENT
  Age: 70 Year
  Sex: Female
  Weight: 56 kg

DRUGS (6)
  1. VELIPARIB [Suspect]
     Active Substance: VELIPARIB
     Indication: FALLOPIAN TUBE CANCER
     Dosage: DAYS 1-28
     Route: 048
     Dates: start: 20140211
  2. GEMCITABINE [Concomitant]
     Active Substance: GEMCITABINE\GEMCITABINE HYDROCHLORIDE
     Dosage: 1,8,15,28 DAY CYCLE
     Route: 042
  3. BEVACIZUMAB [Suspect]
     Active Substance: BEVACIZUMAB
     Indication: FALLOPIAN TUBE CANCER
     Dosage: 10 MG/M2 OVER 30 MINUTES ON DAY 1 AND DAY 15
     Route: 065
     Dates: start: 20140211
  4. CARBOPLATIN. [Suspect]
     Active Substance: CARBOPLATIN
     Indication: FALLOPIAN TUBE CANCER
     Dosage: AUC5,  OVER 30 MINUTES ON DAY 1+#13
     Route: 042
     Dates: end: 20140211
  5. VELIPARIB [Suspect]
     Active Substance: VELIPARIB
     Route: 048
     Dates: start: 20140228
  6. PEGYLATED LIPOSOMAL DOXORUBICIN [Suspect]
     Active Substance: DOXORUBICIN
     Indication: FALLOPIAN TUBE CANCER
     Dosage: 30 MG/M2 IV OVER 1 HOUR ON DAY 1+#13;
     Route: 042
     Dates: start: 20140211

REACTIONS (15)
  - Anaemia [Recovered/Resolved]
  - Muscular weakness [Recovered/Resolved]
  - Pain in extremity [Recovered/Resolved]
  - Hypertension [Unknown]
  - Platelet count decreased [Recovering/Resolving]
  - Constipation [Recovered/Resolved]
  - Fatigue [Recovered/Resolved]
  - Dyspnoea [Recovered/Resolved]
  - Hypertension [Unknown]
  - Nausea [Recovered/Resolved]
  - Embolism [Recovering/Resolving]
  - Blood creatinine increased [Recovered/Resolved]
  - Decreased appetite [Recovered/Resolved]
  - Abdominal pain [Recovered/Resolved]
  - Neutrophil count decreased [Unknown]

NARRATIVE: CASE EVENT DATE: 20140224
